FAERS Safety Report 13836568 (Version 1)
Quarter: 2017Q3

REPORT INFORMATION
  Report Type: Spontaneous
  Country: US (occurrence: US)
  Receive Date: 20170804
  Receipt Date: 20170804
  Transmission Date: 20171127
  Serious: No
  Sender: FDA-Public Use
  Company Number: US-ROCHE-1005295

PATIENT
  Sex: Female

DRUGS (5)
  1. VITAMIN C [Concomitant]
     Active Substance: ASCORBIC ACID
  2. COD LIVER OIL [Concomitant]
     Active Substance: COD LIVER OIL
  3. LIPITOR [Concomitant]
     Active Substance: ATORVASTATIN CALCIUM
  4. GARLIC. [Concomitant]
     Active Substance: GARLIC
  5. BONIVA [Suspect]
     Active Substance: IBANDRONATE SODIUM
     Indication: OSTEOPOROSIS
     Route: 048

REACTIONS (6)
  - Oropharyngeal pain [Unknown]
  - Inappropriate schedule of drug administration [Unknown]
  - Confusional state [Unknown]
  - Gastrooesophageal reflux disease [Recovering/Resolving]
  - Bone density decreased [Not Recovered/Not Resolved]
  - Hypoacusis [Unknown]
